FAERS Safety Report 5531314-X (Version None)
Quarter: 2007Q4

REPORT INFORMATION
  Report Type: 
  Country: None (occurrence: None)
  Receive Date: 20071128
  Receipt Date: 20071113
  Transmission Date: 20080405
  Serious: Yes (Other)
  Sender: FDA-Public Use
  Company Number: 2007S1011793

PATIENT
  Age: 28 Year
  Sex: Female

DRUGS (1)
  1. FINASTERIDE [Suspect]
     Indication: MALE PATTERN BALDNESS
     Dosage: 2.54 MG; TWICE A DAY
     Dates: end: 20050716

REACTIONS (2)
  - BLIGHTED OVUM [None]
  - TRANSMISSION OF DRUG VIA SEMEN [None]
